FAERS Safety Report 6893521-3 (Version None)
Quarter: 2010Q3

REPORT INFORMATION
  Report Type: 
  Country: None (occurrence: None)
  Receive Date: 20100731
  Receipt Date: 20091002
  Transmission Date: 20110219
  Serious: Yes (Hospitalization, Other)
  Sender: FDA-Public Use
  Company Number: US-PFIZER INC-2008052247

PATIENT
  Sex: Male
  Weight: 143.6 kg

DRUGS (10)
  1. NEURONTIN [Suspect]
     Indication: NEUROPATHY PERIPHERAL
     Dosage: 300 MG, 3X/DAY
     Dates: start: 20020101
  2. NEURONTIN [Suspect]
     Dosage: UNK
  3. LYRICA [Suspect]
     Dosage: UNK
  4. CELEBREX [Suspect]
     Indication: ARTHRITIS
     Dosage: UNK
  5. GLUTAMATE SODIUM [Suspect]
     Dosage: UNK
  6. LIPITOR [Concomitant]
  7. NEXIUM [Concomitant]
     Dosage: UNK
  8. SYNTHROID [Concomitant]
     Dosage: UNK
  9. ALLOPURINOL [Concomitant]
     Indication: GOUT
     Dosage: UNK
  10. ATENOLOL [Concomitant]
     Dosage: UNK

REACTIONS (8)
  - ABDOMINAL DISCOMFORT [None]
  - BALANCE DISORDER [None]
  - BURNING SENSATION [None]
  - DIZZINESS [None]
  - DRUG INEFFECTIVE [None]
  - HAEMATEMESIS [None]
  - HAEMORRHAGE [None]
  - OEDEMA PERIPHERAL [None]
